FAERS Safety Report 10522820 (Version 3)
Quarter: 2015Q3

REPORT INFORMATION
  Report Type: Spontaneous
  Country: US (occurrence: US)
  Receive Date: 20141016
  Receipt Date: 20150904
  Transmission Date: 20151125
  Serious: Yes (Hospitalization, Other)
  Sender: FDA-Public Use
  Company Number: US-FRI-1000071313

PATIENT
  Age: 42 Year
  Sex: Female
  Weight: 55 kg

DRUGS (20)
  1. VITAMIN B12 [Concomitant]
     Active Substance: CYANOCOBALAMIN
     Dosage: 1000 MCG
     Dates: start: 20130701
  2. BI-EXT [Concomitant]
     Indication: OESTROGEN DEFICIENCY
     Dosage: 0.15 MG/GM, 2 CLICKS TOPICALLY
     Dates: start: 201303
  3. GARLIC. [Concomitant]
     Active Substance: GARLIC
     Indication: CANDIDA INFECTION
     Dates: start: 201405, end: 201405
  4. S-ADENOSYLMETHIONINE SULFATE P-TOLUENESULFONATE [Concomitant]
     Active Substance: ADEMETIONINE SULFATE TOSILATE
     Dosage: 400 MG
     Dates: start: 20130821, end: 20140426
  5. TINOSPORA CORDIFOLIA [Suspect]
     Active Substance: HERBALS
     Indication: IMMUNE SYSTEM DISORDER
     Dates: start: 201405, end: 201406
  6. PROBIOTIC [Concomitant]
     Active Substance: PROBIOTICS NOS
     Indication: ROUTINE HEALTH MAINTENANCE
     Route: 048
     Dates: start: 20130821
  7. MULTIVITAMIN [Concomitant]
     Active Substance: VITAMINS
     Indication: ROUTINE HEALTH MAINTENANCE
     Dates: start: 20130701
  8. SELENIUM [Concomitant]
     Active Substance: SELENIUM
     Dosage: 200 MCG
     Dates: start: 20130307
  9. ARMOUR THYROID [Suspect]
     Active Substance: THYROID, PORCINE\THYROID, UNSPECIFIED
     Indication: AUTOIMMUNE THYROIDITIS
     Dosage: 30 MG
     Route: 048
     Dates: start: 201301, end: 201401
  10. FOLIC ACID. [Concomitant]
     Active Substance: FOLIC ACID
     Dosage: 800 MCG
     Dates: start: 20130701
  11. OIL OF OREGANO [Concomitant]
     Indication: CANDIDA INFECTION
     Dates: start: 201405, end: 201405
  12. ARMOUR THYROID [Suspect]
     Active Substance: THYROID, PORCINE\THYROID, UNSPECIFIED
     Dosage: 60 MG
     Route: 048
     Dates: start: 201402, end: 20140619
  13. FISH OIL [Concomitant]
     Active Substance: FISH OIL
     Indication: ROUTINE HEALTH MAINTENANCE
     Dosage: 1000 MG
     Dates: start: 20111227
  14. OLIVE LEAF EXTRACT [Concomitant]
     Dates: start: 201405, end: 201405
  15. VITAMIN D [Concomitant]
     Active Substance: CHOLECALCIFEROL
     Indication: VITAMIN D DEFICIENCY
     Dosage: 1000 IU
     Route: 048
     Dates: start: 20140430
  16. CALCIUM [Concomitant]
     Active Substance: CALCIUM
     Indication: ROUTINE HEALTH MAINTENANCE
     Dosage: 400 MG
  17. ARMOUR THYROID [Suspect]
     Active Substance: THYROID, PORCINE\THYROID, UNSPECIFIED
     Dosage: 45MG
     Route: 048
     Dates: start: 201401, end: 201402
  18. ARMOUR THYROID [Suspect]
     Active Substance: THYROID, PORCINE\THYROID, UNSPECIFIED
     Dosage: 45 MG
     Route: 048
     Dates: start: 20140620
  19. PROGESTERONE. [Concomitant]
     Active Substance: PROGESTERONE
     Dosage: 1/4 TEASPOON TOPICALLY
  20. APPLE CIDER VINEGAR [Concomitant]
     Active Substance: APPLE CIDER VINEGAR
     Indication: CANDIDA INFECTION
     Dates: start: 201405, end: 201405

REACTIONS (7)
  - Fatigue [Recovering/Resolving]
  - Hepatic enzyme increased [Recovering/Resolving]
  - Ascites [Recovering/Resolving]
  - Hepatitis cholestatic [Recovering/Resolving]
  - Nausea [Recovering/Resolving]
  - Jaundice [Recovering/Resolving]
  - Nausea [Recovered/Resolved]

NARRATIVE: CASE EVENT DATE: 20140529
